FAERS Safety Report 5472603-7 (Version None)
Quarter: 2007Q4

REPORT INFORMATION
  Report Type: 
  Country: None (occurrence: None)
  Receive Date: 20071001
  Receipt Date: 20060908
  Transmission Date: 20080405
  Serious: Yes (Hospitalization)
  Sender: FDA-Public Use
  Company Number: US-ASTRAZENECA-2006UW10497

PATIENT
  Age: 83 Year
  Sex: Female
  Weight: 85.3 kg

DRUGS (6)
  1. ARIMIDEX [Suspect]
     Indication: BREAST CANCER
     Route: 048
     Dates: start: 20020101
  2. POTASSIUM CHLORIDE [Concomitant]
     Route: 048
  3. VERAPAMIL [Concomitant]
     Route: 048
  4. ACTOS [Concomitant]
     Route: 048
  5. FUROSEMIDE [Concomitant]
     Route: 048
  6. PLAVIX [Concomitant]
     Route: 048

REACTIONS (9)
  - ANAEMIA [None]
  - ARTHRALGIA [None]
  - ASTHENIA [None]
  - BACK PAIN [None]
  - HYPERTENSION [None]
  - LYMPHOEDEMA [None]
  - MYALGIA [None]
  - OEDEMA PERIPHERAL [None]
  - OSTEOPOROSIS [None]
